FAERS Safety Report 15785401 (Version 2)
Quarter: 2019Q1

REPORT INFORMATION
  Report Type: Spontaneous
  Country: SK (occurrence: SK)
  Receive Date: 20190103
  Receipt Date: 20190116
  Transmission Date: 20190417
  Serious: Yes (Death, Other)
  Sender: FDA-Public Use
  Company Number: SK-TEVA-2018-SK-994355

PATIENT
  Age: 53 Year
  Sex: Female

DRUGS (7)
  1. IRINOTECAN [Suspect]
     Active Substance: IRINOTECAN
     Indication: PANCREATIC CARCINOMA
     Dosage: 1 CYCLE INCLUDED ADMINISTRATION ON DAY 1
     Route: 042
     Dates: start: 2017, end: 2017
  2. IRINOTECAN [Suspect]
     Active Substance: IRINOTECAN
     Dosage: 1 CYCLE INCLUDED ADMINISTRATION ON DAY 1
     Route: 042
     Dates: start: 2017, end: 2017
  3. LEVOFOLIC [Suspect]
     Active Substance: LEUCOVORIN
     Indication: PANCREATIC CARCINOMA
     Dosage: 1 CYCLE INCLUDED ADMINISTRATION ON DAY 1
     Route: 042
     Dates: start: 2017, end: 2017
  4. 5- FLUOROURACIL [Suspect]
     Active Substance: FLUOROURACIL
     Dosage: 1 CYCLE ADMNISTERED ON D1,2
     Route: 040
     Dates: start: 2017, end: 2017
  5. LEVOFOLIC [Suspect]
     Active Substance: LEUCOVORIN
     Dosage: 1 CYCLE INCLUDED ADMINISTRATION ON DAY 1
     Route: 042
     Dates: start: 2017, end: 2017
  6. 5- FLUOROURACIL [Suspect]
     Active Substance: FLUOROURACIL
     Indication: PANCREATIC CARCINOMA
     Dosage: 400 MG/M2 DAILY;
     Route: 040
     Dates: start: 2017, end: 2017
  7. 5- FLUOROURACIL [Suspect]
     Active Substance: FLUOROURACIL
     Dosage: 1 CYCLE ADMNISTERED ON D1,2
     Route: 040
     Dates: start: 2017, end: 2017

REACTIONS (3)
  - Asthenia [Not Recovered/Not Resolved]
  - Hepatic failure [Not Recovered/Not Resolved]
  - Liver disorder [Not Recovered/Not Resolved]

NARRATIVE: CASE EVENT DATE: 2017
